FAERS Safety Report 5934353-X (Version None)
Quarter: 2008Q4

REPORT INFORMATION
  Report Type: 
  Country: None (occurrence: None)
  Receive Date: 20081029
  Receipt Date: 20081021
  Transmission Date: 20090506
  Serious: Yes (Hospitalization)
  Sender: FDA-Public Use
  Company Number: PHHY2008ES25276

PATIENT
  Age: 75 Year
  Sex: Male

DRUGS (1)
  1. VOLTAREN [Suspect]
     Indication: ARTHRITIS
     Dosage: 50 MG, UNK
     Route: 048
     Dates: start: 20071121, end: 20071126

REACTIONS (1)
  - GASTRIC HAEMORRHAGE [None]
